FAERS Safety Report 6023885-4 (Version None)
Quarter: 2008Q4

REPORT INFORMATION
  Report Type: 
  Country: None (occurrence: None)
  Receive Date: 20081230
  Receipt Date: 20081230
  Transmission Date: 20090506
  Serious: Yes (Other)
  Sender: FDA-Public Use
  Company Number: FR-PFIZER INC-2008083283

PATIENT

DRUGS (2)
  1. TAHOR [Suspect]
     Dosage: 10 MG, UNK
  2. FOSAMAX [Concomitant]
     Dosage: UNK

REACTIONS (2)
  - EYE OEDEMA [None]
  - FACE OEDEMA [None]
